FAERS Safety Report 18373271 (Version 1)
Quarter: 2020Q4

REPORT INFORMATION
  Report Type: Spontaneous
  Country: FR (occurrence: FR)
  Receive Date: 20201012
  Receipt Date: 20201012
  Transmission Date: 20210114
  Serious: Yes (Other)
  Sender: FDA-Public Use
  Company Number: FR-PFIZER INC-2020389969

PATIENT
  Age: 37 Year
  Sex: Male

DRUGS (3)
  1. ALPRAZOLAM. [Suspect]
     Active Substance: ALPRAZOLAM
     Dosage: UNK
     Route: 048
  2. ALCOOL [Suspect]
     Active Substance: ALCOHOL
     Dosage: UNK
     Route: 048
  3. SERESTA [Suspect]
     Active Substance: OXAZEPAM
     Dosage: 3 TO 6 PER DAY PRESCRIBED
     Route: 048
     Dates: start: 2017

REACTIONS (3)
  - Depressed level of consciousness [Recovered/Resolved]
  - Disease recurrence [Unknown]
  - Drug abuse [Unknown]

NARRATIVE: CASE EVENT DATE: 20200329
